FAERS Safety Report 7817095-5 (Version None)
Quarter: 2011Q4

REPORT INFORMATION
  Report Type: 
  Country: None (occurrence: None)
  Receive Date: 20111017
  Receipt Date: 20111003
  Transmission Date: 20120403
  Serious: Yes (Other)
  Sender: FDA-Public Use
  Company Number: FR-KINGPHARMUSA00001-K201101163

PATIENT
  Age: 61 Year
  Sex: Female

DRUGS (1)
  1. ALTACE [Suspect]
     Indication: HYPERTENSION
     Dosage: 10 MG, QD
     Route: 048
     Dates: start: 20100301, end: 20110401

REACTIONS (4)
  - SKIN IRRITATION [None]
  - PRURITUS [None]
  - HYPOAESTHESIA [None]
  - PARAESTHESIA [None]
